FAERS Safety Report 7488249-5 (Version None)
Quarter: 2011Q2

REPORT INFORMATION
  Report Type: 
  Country: None (occurrence: None)
  Receive Date: 20110518
  Receipt Date: 20110512
  Transmission Date: 20111010
  Serious: Yes (Other)
  Sender: FDA-Public Use
  Company Number: US-ROCHE-777013

PATIENT

DRUGS (1)
  1. ACCUTANE [Suspect]
     Route: 065
     Dates: start: 19991101, end: 20000228

REACTIONS (2)
  - ARTHROPATHY [None]
  - COLITIS ULCERATIVE [None]
